FAERS Safety Report 12746586 (Version 2)
Quarter: 2016Q3

REPORT INFORMATION
  Report Type: Spontaneous
  Country: US (occurrence: US)
  Receive Date: 20160915
  Receipt Date: 20160921
  Transmission Date: 20161109
  Serious: No
  Sender: FDA-Public Use
  Company Number: US-ACTELION-A-US2014-103420

PATIENT
  Age: 32 Year
  Sex: Female

DRUGS (3)
  1. OPSUMIT [Suspect]
     Active Substance: MACITENTAN
     Indication: PULMONARY ARTERIAL HYPERTENSION
     Dosage: 10 MG, QD
     Route: 048
     Dates: start: 20140416
  2. REMODULIN [Concomitant]
     Active Substance: TREPROSTINIL
  3. ADCIRCA [Concomitant]
     Active Substance: TADALAFIL

REACTIONS (13)
  - Infusion site swelling [Unknown]
  - Catheter site infection [Unknown]
  - Infusion site erythema [Unknown]
  - Dermatitis contact [Unknown]
  - Purulent discharge [Unknown]
  - Catheter management [Unknown]
  - Catheter site haemorrhage [Unknown]
  - Infusion site abscess [Unknown]
  - Infusion site irritation [Unknown]
  - Catheter site bruise [Unknown]
  - Infusion site pain [Unknown]
  - Catheter site warmth [Unknown]
  - Infusion site mass [Unknown]
